FAERS Safety Report 6876576-1 (Version None)
Quarter: 2010Q3

REPORT INFORMATION
  Report Type: 
  Country: None (occurrence: None)
  Receive Date: 20100727
  Receipt Date: 20100715
  Transmission Date: 20110219
  Serious: Yes (Congenital Anomaly)
  Sender: FDA-Public Use
  Company Number: US-MYLANLABS-2010S1013032

PATIENT
  Sex: Male
  Weight: 2.86 kg

DRUGS (4)
  1. DARUNAVIR ETHANOLATE [Suspect]
     Route: 064
     Dates: start: 20090909, end: 20100324
  2. RITONAVIR [Suspect]
     Route: 064
     Dates: start: 20090909
  3. LAMIVUDINE + ZIDOVUDINE [Suspect]
     Route: 064
     Dates: start: 20090909
  4. ZIDOVUDINE [Suspect]
     Route: 064
     Dates: start: 20100104, end: 20100105

REACTIONS (3)
  - CARDIAC MURMUR [None]
  - DRUG EXPOSURE DURING PREGNANCY [None]
  - HYPERBILIRUBINAEMIA NEONATAL [None]
